FAERS Safety Report 7442295-6 (Version None)
Quarter: 2011Q2

REPORT INFORMATION
  Report Type: 
  Country: None (occurrence: None)
  Receive Date: 20110425
  Receipt Date: 20110425
  Transmission Date: 20111010
  Serious: Yes (Hospitalization)
  Sender: FDA-Public Use
  Company Number: None

PATIENT
  Sex: Male
  Weight: 83.0083 kg

DRUGS (2)
  1. ASPIRIN [Suspect]
     Dosage: 81 MG
  2. PLAVIX [Suspect]
     Indication: CORONARY ARTERY DISEASE
     Dosage: 75 MG

REACTIONS (4)
  - DUODENITIS [None]
  - GASTROINTESTINAL HAEMORRHAGE [None]
  - OCCULT BLOOD POSITIVE [None]
  - GASTRITIS [None]
